FAERS Safety Report 8217396-5 (Version None)
Quarter: 2012Q1

REPORT INFORMATION
  Report Type: 
  Country: None (occurrence: None)
  Receive Date: 20120315
  Receipt Date: 20120302
  Transmission Date: 20120608
  Serious: Yes (Hospitalization)
  Sender: FDA-Public Use
  Company Number: 1217571

PATIENT
  Age: 50 Year
  Sex: Female

DRUGS (4)
  1. GEMCITABINE HYDROCHLORIDE [Suspect]
     Indication: ADENOCARCINOMA PANCREAS
     Dosage: 1000 MG/M2 ON DAYS 1, 8, AND 15 EVERY 28 D
  2. ERLOTINIB HYDROCHLORIDE [Suspect]
     Indication: ADENOCARCINOMA PANCREAS
     Dosage: 100 MG MILLIGRAM(S), ORAL
     Route: 048
  3. CAPECITABINE [Suspect]
     Indication: ADENOCARCINOMA PANCREAS
     Dosage: ORAL
     Route: 048
  4. (THERAPEUTIC RADIOPHARMACEUTICALS) [Suspect]
     Indication: ADENOCARCINOMA PANCREAS

REACTIONS (1)
  - POSTERIOR REVERSIBLE ENCEPHALOPATHY SYNDROME [None]
